FAERS Safety Report 5768212-2 (Version None)
Quarter: 2008Q2

REPORT INFORMATION
  Report Type: 
  Country: None (occurrence: None)
  Receive Date: 20080612
  Receipt Date: 20080610
  Transmission Date: 20081010
  Serious: Yes (Hospitalization)
  Sender: FDA-Public Use
  Company Number: ES-MERCK-0806ESP00013

PATIENT
  Age: 52 Year
  Sex: Male

DRUGS (7)
  1. INVANZ [Suspect]
     Indication: BACTERAEMIA
     Route: 065
     Dates: start: 20080425, end: 20080429
  2. INVANZ [Suspect]
     Indication: NECROSIS
     Route: 065
     Dates: start: 20080425, end: 20080429
  3. OMEPRAZOLE [Suspect]
     Route: 048
     Dates: start: 20080419, end: 20080429
  4. CLOXACILLIN [Suspect]
     Indication: BACTERAEMIA
     Route: 065
     Dates: start: 20080425, end: 20080429
  5. CLOXACILLIN [Suspect]
     Indication: NECROSIS
     Route: 065
     Dates: start: 20080425, end: 20080429
  6. DISTRANEURIN [Concomitant]
     Route: 065
     Dates: start: 20080419
  7. HIDROXIL B12 B6 B1 [Concomitant]
     Route: 065
     Dates: start: 20080421

REACTIONS (1)
  - NEPHRITIS INTERSTITIAL [None]
